FAERS Safety Report 17447346 (Version 5)
Quarter: 2020Q3

REPORT INFORMATION
  Report Type: Report from Study
  Country: US (occurrence: US)
  Receive Date: 20200221
  Receipt Date: 20200825
  Transmission Date: 20201102
  Serious: Yes (Hospitalization, Other)
  Sender: FDA-Public Use
  Company Number: NVSC2020US047767

PATIENT
  Age: 22 Year
  Sex: Female
  Weight: 81.63 kg

DRUGS (4)
  1. TREPROSTINIL. [Suspect]
     Active Substance: TREPROSTINIL
     Indication: PULMONARY ARTERIAL HYPERTENSION
     Dosage: 111 OT, CONT(NG/KG/MIN)
     Route: 042
     Dates: start: 20191006
  2. TRACLEER [Concomitant]
     Active Substance: BOSENTAN
     Indication: PRODUCT USED FOR UNKNOWN INDICATION
     Route: 065
  3. TREPROSTINIL. [Suspect]
     Active Substance: TREPROSTINIL
     Dosage: 114 OT, CONT(NG/KG/MIN)
     Route: 065
     Dates: start: 20191006
  4. ELIQUIS [Concomitant]
     Active Substance: APIXABAN
     Indication: PRODUCT USED FOR UNKNOWN INDICATION
     Dosage: UNK
     Route: 065

REACTIONS (17)
  - Respiratory distress [Unknown]
  - Pain in jaw [Recovering/Resolving]
  - Flushing [Unknown]
  - Thrombosis [Unknown]
  - Thyrotoxic crisis [Unknown]
  - Irritable bowel syndrome [Unknown]
  - Infection [Unknown]
  - Rash [Unknown]
  - Haemorrhage [Unknown]
  - Accidental exposure to product [Unknown]
  - Diarrhoea [Unknown]
  - Headache [Unknown]
  - Complication associated with device [Unknown]
  - Feeling hot [Unknown]
  - Syncope [Unknown]
  - Loss of consciousness [Recovering/Resolving]
  - Hypothyroidism [Unknown]

NARRATIVE: CASE EVENT DATE: 20200817
